FAERS Safety Report 9633499 (Version 1)
Quarter: 2013Q4

REPORT INFORMATION
  Report Type: Spontaneous
  Country: FR (occurrence: FR)
  Receive Date: 20131021
  Receipt Date: 20131021
  Transmission Date: 20140711
  Serious: Yes (Other)
  Sender: FDA-Public Use
  Company Number: PHHY2013FR117458

PATIENT
  Sex: Female

DRUGS (2)
  1. ZOMETA [Suspect]
     Indication: BREAST CANCER
     Dosage: FOR ONE MONTH
  2. AFINITOR [Suspect]
     Dosage: FOR 15 DAYS

REACTIONS (1)
  - Osteonecrosis of jaw [Unknown]
